FAERS Safety Report 5401231-4 (Version None)
Quarter: 2007Q3

REPORT INFORMATION
  Report Type: 
  Country: None (occurrence: None)
  Receive Date: 20070731
  Receipt Date: 20070718
  Transmission Date: 20080115
  Serious: Yes (Hospitalization)
  Sender: FDA-Public Use
  Company Number: DE-AMGEN-UK224203

PATIENT
  Sex: Female

DRUGS (5)
  1. NEULASTA [Suspect]
     Indication: CHEMOTHERAPY
     Route: 058
     Dates: start: 20070329, end: 20070630
  2. ADRIAMYCIN PFS [Suspect]
     Route: 041
     Dates: start: 20070329
  3. DOCETAXEL [Suspect]
     Route: 041
     Dates: start: 20070329
  4. CYCLOPHOSPHAMIDE [Suspect]
     Route: 041
     Dates: start: 20070329
  5. GRANISETRON [Suspect]
     Route: 042
     Dates: start: 20070329, end: 20070329

REACTIONS (2)
  - HEADACHE [None]
  - NECK PAIN [None]
